FAERS Safety Report 18648385 (Version 2)
Quarter: 2020Q4

REPORT INFORMATION
  Report Type: Spontaneous
  Country: US (occurrence: US)
  Receive Date: 20201222
  Receipt Date: 20201224
  Transmission Date: 20210114
  Serious: No
  Sender: FDA-Public Use
  Company Number: US-ROCHE-2737724

PATIENT
  Sex: Male

DRUGS (1)
  1. OCREVUS [Suspect]
     Active Substance: OCRELIZUMAB
     Indication: MULTIPLE SCLEROSIS
     Dosage: IV 300 MG INFUSED ON NOVEMBER 5TH, 2020 AND IV 300 MG IV INFUSED ON NOVEMBER 15, 2020
     Route: 042
     Dates: start: 20201105

REACTIONS (1)
  - COVID-19 [Unknown]
